FAERS Safety Report 8188393-3 (Version None)
Quarter: 2012Q1

REPORT INFORMATION
  Report Type: 
  Country: None (occurrence: None)
  Receive Date: 20120306
  Receipt Date: 20120223
  Transmission Date: 20120608
  Serious: Yes (Other)
  Sender: FDA-Public Use
  Company Number: PHHY2011JP14698

PATIENT
  Sex: Male

DRUGS (52)
  1. CLOZARIL [Suspect]
     Dosage: 75 MG
     Dates: start: 20110209, end: 20110215
  2. CLOZARIL [Suspect]
     Dosage: 25 MG, UNK
     Dates: start: 20110422, end: 20110423
  3. CLOZARIL [Suspect]
     Dosage: 125 MG
     Route: 048
     Dates: start: 20110501, end: 20110504
  4. RISPERDAL [Concomitant]
     Indication: SCHIZOPHRENIA
     Dosage: 4 MG, UNK
     Route: 048
  5. TASMOLIN [Concomitant]
     Dosage: 2 MG, UNK
     Route: 048
  6. ZITHROMAX [Concomitant]
     Dosage: 2000 MG, UNK
     Route: 048
     Dates: start: 20110217, end: 20110217
  7. RISPERDAL [Concomitant]
     Dosage: 4 MG, UNK
     Route: 048
     Dates: start: 20110415, end: 20110419
  8. SODIUM PICOSULFATE [Concomitant]
     Dosage: 2.5 MG, UNK
     Route: 047
  9. RONFLEMAN [Concomitant]
     Dosage: 0.25 MG, UNK
     Route: 048
     Dates: end: 20110623
  10. CLOZARIL [Suspect]
     Dosage: 50 MG
     Route: 048
     Dates: start: 20110205, end: 20110208
  11. CLOZARIL [Suspect]
     Dosage: 175 MG
     Route: 048
     Dates: start: 20110509, end: 20110513
  12. CLOZARIL [Suspect]
     Dosage: 225 MG
     Route: 048
     Dates: start: 20110519, end: 20110601
  13. PREDNISOLONE [Suspect]
     Dosage: 15 MG, QD
     Dates: start: 20110222, end: 20110228
  14. PREDNISOLONE [Suspect]
     Dosage: 10 MG, UNK
     Dates: start: 20110301, end: 20110307
  15. INVEGA [Concomitant]
     Dosage: 9 MG, UNK
     Route: 048
  16. TAMIFLU [Concomitant]
     Dosage: 150 MG, UNK
     Route: 048
     Dates: start: 20110219, end: 20110223
  17. VERAPAMIL HCL [Concomitant]
     Dosage: 40 MG, UNK
     Route: 048
     Dates: start: 20110223, end: 20110301
  18. CLOZARIL [Suspect]
     Indication: SCHIZOPHRENIA
     Dosage: 12.5 MG,
     Route: 048
     Dates: start: 20110201, end: 20110201
  19. CLOZARIL [Suspect]
     Dosage: 100 MG
     Route: 048
     Dates: start: 20110316, end: 20110322
  20. CLOZARIL [Suspect]
     Dosage: 100 MG
     Route: 048
     Dates: start: 20110428, end: 20110430
  21. RISPERDAL [Concomitant]
     Dosage: 3 MG, UNK
     Route: 048
  22. RHUBARB [Concomitant]
     Dosage: 1000 MG, UNK
     Route: 048
  23. TASMOLIN [Concomitant]
     Dosage: 1 MG, UNK
     Route: 048
  24. RONFLEMAN [Concomitant]
     Indication: SCHIZOPHRENIA
     Dosage: 0.25 MG, UNK
     Route: 048
     Dates: start: 20110205
  25. RONFLEMAN [Concomitant]
     Dosage: 0.25 MG, UNK
     Route: 048
  26. RONFLEMAN [Concomitant]
     Dosage: 0.25 MG, UNK
     Route: 048
  27. VALPROATE SODIUM [Concomitant]
     Indication: SCHIZOPHRENIA
     Dosage: 600 MG, UNK
     Route: 048
  28. CLOZARIL [Suspect]
     Dosage: 50 MG
     Route: 048
     Dates: start: 20110302, end: 20110308
  29. CLOZARIL [Suspect]
     Dosage: 150 MG
     Route: 048
     Dates: start: 20110505, end: 20110508
  30. CLOZARIL [Suspect]
     Dosage: 275 MG
     Route: 048
     Dates: start: 20110609, end: 20110616
  31. CLOZARIL [Suspect]
     Dosage: 300 MG
     Route: 048
     Dates: start: 20110617
  32. INVEGA [Concomitant]
     Indication: SCHIZOPHRENIA
     Dosage: 6 MG, UNK
     Dates: start: 20110323
  33. SITAGLIPTIN PHOSPHATE [Concomitant]
     Dosage: 50 MG, UNK
     Route: 048
     Dates: start: 20110330
  34. CLOZARIL [Suspect]
     Dosage: 25 MG
     Route: 048
     Dates: start: 20110202, end: 20110204
  35. CLOZARIL [Suspect]
     Dosage: 100 MG
     Route: 048
     Dates: start: 20110216, end: 20110222
  36. CLOZARIL [Suspect]
     Dosage: 50 MG
     Route: 048
     Dates: start: 20110424, end: 20110424
  37. NITRAZEPAM [Concomitant]
     Indication: SCHIZOPHRENIA
     Dosage: 5 MG, UNK
     Route: 048
  38. LORAZEPAM [Concomitant]
     Dosage: 0.5 MG, UNK
     Route: 048
     Dates: end: 20110421
  39. CLOZARIL [Suspect]
     Dosage: 75 MG
     Route: 048
     Dates: start: 20110309, end: 20110315
  40. CLOZARIL [Suspect]
     Dosage: 75 MG
     Route: 048
     Dates: start: 20110425, end: 20110427
  41. CLOZARIL [Suspect]
     Dosage: 200 MG
     Route: 048
     Dates: start: 20110514, end: 20110518
  42. PREDNISOLONE [Suspect]
     Dosage: 5 MG, DAILY
     Dates: start: 20110308, end: 20110314
  43. INVEGA [Concomitant]
     Dosage: 12 MG, UNK
     Route: 048
     Dates: start: 20110420
  44. FLUNITRAZEPAM [Concomitant]
     Indication: SCHIZOPHRENIA
     Dosage: 1 MG, UNK
     Route: 048
  45. RHUBARB [Concomitant]
     Dosage: 3000 MG, UNK
     Route: 048
  46. SITAGLIPTIN PHOSPHATE [Concomitant]
     Dosage: 100 MG, UNK
     Route: 048
  47. LOXOPROFEN [Concomitant]
     Dosage: 60 MG, UNK
     Route: 048
     Dates: start: 20110216
  48. CLOZARIL [Suspect]
     Dosage: 12.5 MG
     Route: 048
     Dates: start: 20110421, end: 20110421
  49. CLOZARIL [Suspect]
     Dosage: 250 MG
     Route: 048
     Dates: start: 20110602, end: 20110608
  50. LITHIUM CARBONATE [Concomitant]
     Indication: SCHIZOPHRENIA
     Dosage: 400 MG, UNK
     Dates: start: 20110330
  51. LORAZEPAM [Concomitant]
     Indication: SCHIZOPHRENIA
     Dosage: 0.5 MG, UNK
     Route: 048
     Dates: start: 20110202
  52. LOXOPROFEN [Concomitant]
     Dosage: 60 MG, UNK
     Route: 048
     Dates: end: 20110224

REACTIONS (14)
  - HAEMATOCRIT DECREASED [None]
  - PSYCHIATRIC SYMPTOM [None]
  - WHITE BLOOD CELL COUNT INCREASED [None]
  - GLYCOSYLATED HAEMOGLOBIN INCREASED [None]
  - DIABETES MELLITUS [None]
  - INFLUENZA [None]
  - VIRAL INFECTION [None]
  - HEART RATE DECREASED [None]
  - RESPIRATORY FAILURE [None]
  - BLOOD GLUCOSE INCREASED [None]
  - PYREXIA [None]
  - EOSINOPHIL COUNT INCREASED [None]
  - PLATELET COUNT INCREASED [None]
  - C-REACTIVE PROTEIN DECREASED [None]
